FAERS Safety Report 7574345-0 (Version None)
Quarter: 2011Q2

REPORT INFORMATION
  Report Type: 
  Country: None (occurrence: None)
  Receive Date: 20110627
  Receipt Date: 20110615
  Transmission Date: 20111010
  Serious: Yes (Hospitalization, Disabling, Other)
  Sender: FDA-Public Use
  Company Number: US-MERCK-1103USA03938

PATIENT
  Age: 56 Year
  Sex: Female
  Weight: 80 kg

DRUGS (5)
  1. FOSAMAX [Suspect]
     Indication: OSTEOPOROSIS
     Route: 048
     Dates: start: 20021201, end: 20080101
  2. BONIVA [Suspect]
     Indication: OSTEOPOROSIS
     Route: 065
     Dates: start: 20080101, end: 20090101
  3. ALENDRONATE SODIUM [Suspect]
     Route: 065
     Dates: start: 20100601
  4. FOSAMAX PLUS D [Suspect]
     Indication: OSTEOPOROSIS
     Route: 048
     Dates: start: 20070201, end: 20101001
  5. ALENDRONATE SODIUM [Suspect]
     Route: 065
     Dates: start: 20090901

REACTIONS (30)
  - HYPERPARATHYROIDISM [None]
  - HEAD INJURY [None]
  - DIZZINESS [None]
  - ROAD TRAFFIC ACCIDENT [None]
  - NEUROPATHY PERIPHERAL [None]
  - ISCHAEMIA [None]
  - HYPERTENSION [None]
  - FEMALE STERILISATION [None]
  - STRESS FRACTURE [None]
  - LOW TURNOVER OSTEOPATHY [None]
  - BLOOD CREATINE PHOSPHOKINASE INCREASED [None]
  - HAEMATURIA [None]
  - OSTEOARTHRITIS [None]
  - OSTEOPOROSIS [None]
  - DEAFNESS BILATERAL [None]
  - BLOOD CHOLESTEROL INCREASED [None]
  - FOOT FRACTURE [None]
  - PERIARTHRITIS [None]
  - CATARACT [None]
  - SCIATICA [None]
  - CARPAL TUNNEL SYNDROME [None]
  - FALL [None]
  - RHEUMATOID FACTOR INCREASED [None]
  - LOCALISED OEDEMA [None]
  - HERPES ZOSTER [None]
  - GAIT DISTURBANCE [None]
  - CORONARY ARTERY DISEASE [None]
  - FEMUR FRACTURE [None]
  - HAEMORRHOIDS [None]
  - VITAMIN D DEFICIENCY [None]
